FAERS Safety Report 13422931 (Version 1)
Quarter: 2017Q2

REPORT INFORMATION
  Report Type: Spontaneous
  Country: US (occurrence: US)
  Receive Date: 20170410
  Receipt Date: 20170410
  Transmission Date: 20170830
  Serious: Yes (Death)
  Sender: FDA-Public Use
  Company Number: None

PATIENT
  Age: 81 Year
  Sex: Male
  Weight: 73.55 kg

DRUGS (7)
  1. LOSARTIN [Concomitant]
     Active Substance: LOSARTAN
  2. FINASTERIDE. [Concomitant]
     Active Substance: FINASTERIDE
  3. JUICE PLUS-GARDEN BLEND, ORCHARD BLEND, VINEYARD BLEND [Concomitant]
  4. WARFARIN [Concomitant]
     Active Substance: WARFARIN
  5. TAMIFLU [Suspect]
     Active Substance: OSELTAMIVIR PHOSPHATE
     Indication: INFLUENZA
     Dosage: ?          QUANTITY:9/?/ C((JS^F?FIC; #6;?
     Route: 048
     Dates: start: 20161220, end: 20161224
  6. DOXAZOSIN [Concomitant]
     Active Substance: DOXAZOSIN\DOXAZOSIN MESYLATE
  7. ATENOLOL. [Concomitant]
     Active Substance: ATENOLOL

REACTIONS (3)
  - Hemiparesis [None]
  - Confusional state [None]
  - Cerebral haemorrhage [None]

NARRATIVE: CASE EVENT DATE: 20161220
